FAERS Safety Report 25157389 (Version 1)
Quarter: 2025Q2

REPORT INFORMATION
  Report Type: Spontaneous
  Country: US (occurrence: US)
  Receive Date: 20250403
  Receipt Date: 20250403
  Transmission Date: 20250716
  Serious: No
  Sender: PFIZER
  Company Number: US-PFIZER INC-202500068990

PATIENT
  Age: 56 Year
  Sex: Female

DRUGS (3)
  1. SOMAVERT [Suspect]
     Active Substance: PEGVISOMANT
     Dosage: 15 MG, DAILY
     Route: 058
     Dates: start: 20250107
  2. ROSUVASTATIN [Concomitant]
     Active Substance: ROSUVASTATIN
  3. SPIRONOLACTONE [Concomitant]
     Active Substance: SPIRONOLACTONE

REACTIONS (1)
  - Insulin-like growth factor increased [Unknown]
